FAERS Safety Report 14943465 (Version 3)
Quarter: 2018Q2

REPORT INFORMATION
  Report Type: Report from Study
  Country: DE (occurrence: DE)
  Receive Date: 20180528
  Receipt Date: 20180613
  Transmission Date: 20180711
  Serious: Yes (Hospitalization, Other)
  Sender: FDA-Public Use
  Company Number: DE-PFIZER INC-2018210336

PATIENT
  Age: 64 Year
  Sex: Female
  Weight: 90 kg

DRUGS (13)
  1. OMEPRAZOLE. [Suspect]
     Active Substance: OMEPRAZOLE
  2. IBUPROFEN. [Concomitant]
     Active Substance: IBUPROFEN
  3. L-THYROXIN [Concomitant]
     Active Substance: LEVOTHYROXINE SODIUM
  4. METAMIZOLE [Concomitant]
     Active Substance: METAMIZOLE
  5. CELEBREX [Suspect]
     Active Substance: CELECOXIB
     Dosage: 100 MG, WEEKLY
     Route: 048
     Dates: start: 20080227, end: 20080407
  6. TRAMADOLOR HEXAL [Suspect]
     Active Substance: TRAMADOL HYDROCHLORIDE
     Dosage: 300 MG, 1X/DAY
     Route: 048
     Dates: start: 20080227, end: 20080407
  7. SIMVASTATIN. [Suspect]
     Active Substance: SIMVASTATIN
  8. LEVOTHYROXINE SODIUM. [Concomitant]
     Active Substance: LEVOTHYROXINE SODIUM
  9. MACROGOL [Concomitant]
     Active Substance: POLYETHYLENE GLYCOLS
  10. KATADOLON S [Suspect]
     Active Substance: FLUPIRTINE
     Indication: OSTEOPOROSIS
     Dosage: 400 MG, 1X/DAY
     Route: 048
     Dates: start: 20080227, end: 20080407
  11. DICLOFENAC [Concomitant]
     Active Substance: DICLOFENAC
  12. CALCIUM/VITAMIN D /01204201/ [Concomitant]
     Active Substance: CALCIUM CARBONATE\ERGOCALCIFEROL
  13. CELEBREX [Suspect]
     Active Substance: CELECOXIB
     Dosage: 600 MG PER WEEK
     Route: 048
     Dates: start: 20080222, end: 200804

REACTIONS (8)
  - Hepatic necrosis [Recovered/Resolved with Sequelae]
  - Drug-induced liver injury [Recovered/Resolved with Sequelae]
  - Aspartate aminotransferase increased [Recovering/Resolving]
  - International normalised ratio abnormal [Recovering/Resolving]
  - Chromaturia [Recovering/Resolving]
  - Alanine aminotransferase increased [Recovering/Resolving]
  - Blood alkaline phosphatase increased [Recovering/Resolving]
  - Fatigue [Recovering/Resolving]

NARRATIVE: CASE EVENT DATE: 20080408
